FAERS Safety Report 5045741-0 (Version None)
Quarter: 2006Q2

REPORT INFORMATION
  Report Type: 
  Country: None (occurrence: None)
  Receive Date: 20060601
  Receipt Date: 20060412
  Transmission Date: 20061013
  Serious: No
  Sender: FDA-Public Use
  Company Number: 2006-BP-04151BP

PATIENT

DRUGS (5)
  1. SPIRIVA [Suspect]
     Indication: CHRONIC OBSTRUCTIVE PULMONARY DISEASE
     Dosage: SEE IMAGE
     Route: 048
     Dates: start: 20060101
  2. SPIRIVA [Suspect]
     Indication: CHRONIC OBSTRUCTIVE PULMONARY DISEASE
     Dosage: SEE IMAGE
     Route: 048
     Dates: start: 20060409
  3. VITAMINS [Concomitant]
  4. PRILOSEC [Concomitant]
  5. XANAX [Concomitant]

REACTIONS (4)
  - CHILLS [None]
  - DIZZINESS [None]
  - FATIGUE [None]
  - INFLUENZA LIKE ILLNESS [None]
